FAERS Safety Report 14647449 (Version 7)
Quarter: 2018Q2

REPORT INFORMATION
  Report Type: Report from Study
  Country: US (occurrence: US)
  Receive Date: 20180316
  Receipt Date: 20180629
  Transmission Date: 20180711
  Serious: Yes (Hospitalization, Other)
  Sender: FDA-Public Use
  Company Number: US-TESARO, INC.-US-2018TSO00014

PATIENT

DRUGS (4)
  1. ZEJULA [Suspect]
     Active Substance: NIRAPARIB
     Indication: OVARIAN CANCER
     Dosage: 300 MG, QD
     Route: 048
     Dates: start: 20171225
  2. ZEJULA [Suspect]
     Active Substance: NIRAPARIB
     Dosage: 200 MG, QD
     Route: 048
  3. ZEJULA [Suspect]
     Active Substance: NIRAPARIB
     Dosage: 200 MG, QD
     Route: 048
  4. ZEJULA [Suspect]
     Active Substance: NIRAPARIB
     Dosage: 300 MG, QD
     Route: 048

REACTIONS (30)
  - Lethargy [Not Recovered/Not Resolved]
  - Musculoskeletal chest pain [Not Recovered/Not Resolved]
  - Thrombocytopenia [Unknown]
  - Blood pressure increased [Recovering/Resolving]
  - Fatigue [Recovering/Resolving]
  - Hypoaesthesia [Not Recovered/Not Resolved]
  - Vomiting [Recovered/Resolved]
  - Cough [Unknown]
  - Thyroid mass [Not Recovered/Not Resolved]
  - Arthralgia [Recovered/Resolved]
  - Anxiety [Not Recovered/Not Resolved]
  - Eructation [Not Recovered/Not Resolved]
  - Contusion [Not Recovered/Not Resolved]
  - Fall [Not Recovered/Not Resolved]
  - Carbohydrate antigen 125 increased [Recovering/Resolving]
  - Red blood cell count decreased [Recovering/Resolving]
  - Palpitations [Not Recovered/Not Resolved]
  - Leukopenia [Recovering/Resolving]
  - Heart rate increased [Not Recovered/Not Resolved]
  - Alanine aminotransferase increased [Unknown]
  - Blood count abnormal [Recovering/Resolving]
  - Haematocrit decreased [Not Recovered/Not Resolved]
  - Dry throat [Not Recovered/Not Resolved]
  - Mean cell haemoglobin increased [Not Recovered/Not Resolved]
  - Dry mouth [Not Recovered/Not Resolved]
  - Nausea [Unknown]
  - Weight decreased [Unknown]
  - Anaemia [Not Recovered/Not Resolved]
  - Mean cell haemoglobin concentration increased [Unknown]
  - Red cell distribution width increased [Unknown]
